FAERS Safety Report 4341513-0 (Version None)
Quarter: 2004Q2

REPORT INFORMATION
  Report Type: 
  Country: None (occurrence: None)
  Receive Date: 20040419
  Receipt Date: 20040419
  Transmission Date: 20050107
  Serious: Yes (Hospitalization)
  Sender: FDA-Public Use
  Company Number: None

PATIENT
  Age: 46 Year
  Sex: Male
  Weight: 75 kg

DRUGS (4)
  1. TEMOZOLOMIDE 150 MG [Suspect]
     Indication: METASTATIC MALIGNANT MELANOMA
     Dosage: 150 MG PO QD
     Route: 048
     Dates: start: 20040301
  2. THALIDAMIDE [Concomitant]
  3. DEXAMETHASONE [Concomitant]
  4. PROTONIX [Concomitant]

REACTIONS (1)
  - PNEUMOCYSTIS CARINII PNEUMONIA [None]
